FAERS Safety Report 23207512 (Version 2)
Quarter: 2023Q4

REPORT INFORMATION
  Report Type: Report from Study
  Country: NL (occurrence: NL)
  Receive Date: 20231120
  Receipt Date: 20231229
  Transmission Date: 20240110
  Serious: Yes (Hospitalization, Other)
  Sender: FDA-Public Use
  Company Number: NL-ABBVIE-5499591

PATIENT
  Sex: Female

DRUGS (11)
  1. CARBIDOPA\LEVODOPA [Suspect]
     Active Substance: CARBIDOPA\LEVODOPA
     Indication: Parkinson^s disease
     Route: 050
     Dates: start: 20200217
  2. CARBIDOPA\LEVODOPA [Suspect]
     Active Substance: CARBIDOPA\LEVODOPA
     Dosage: MD: 13.0ML, CD: 3.2ML/H, ED: 3.0ML
     Route: 050
     Dates: start: 20230308
  3. CARBIDOPA\LEVODOPA [Suspect]
     Active Substance: CARBIDOPA\LEVODOPA
     Route: 050
  4. ROPINIROLE [Concomitant]
     Active Substance: ROPINIROLE
     Indication: Parkinson^s disease
     Dosage: FORM STRENGTH: 8 MILLIGRAM
     Dates: start: 20190201
  5. TEMAZEPAM [Concomitant]
     Active Substance: TEMAZEPAM
     Indication: Product used for unknown indication
     Dosage: FREQUENCY : IF NEEDED
  6. POLYETHYLENE GLYCOLS [Concomitant]
     Active Substance: POLYETHYLENE GLYCOLS
     Indication: Bowel movement irregularity
  7. ACENOCOUMAROL [Concomitant]
     Active Substance: ACENOCOUMAROL
     Indication: Atrial fibrillation
     Dosage: FREQUENCY: ACCORDING TO LIST
     Dates: start: 20190201
  8. MELATONIN [Concomitant]
     Active Substance: MELATONIN
     Indication: Sleep disorder therapy
  9. BENSERAZIDE HYDROCHLORIDE\LEVODOPA [Concomitant]
     Active Substance: BENSERAZIDE HYDROCHLORIDE\LEVODOPA
     Indication: Parkinson^s disease
     Dates: start: 20190201
  10. BENSERAZIDE HYDROCHLORIDE\LEVODOPA [Concomitant]
     Active Substance: BENSERAZIDE HYDROCHLORIDE\LEVODOPA
     Indication: Parkinson^s disease
     Dates: start: 20190201
  11. BENSERAZIDE HYDROCHLORIDE\LEVODOPA [Concomitant]
     Active Substance: BENSERAZIDE HYDROCHLORIDE\LEVODOPA
     Indication: Parkinson^s disease
     Dosage: FORM STRENGTH: 125 MILLIGRAM FREQUENCY : 3 TIMES PER DAY 2

REACTIONS (25)
  - Hernia [Recovering/Resolving]
  - Hallucination [Not Recovered/Not Resolved]
  - Insomnia [Unknown]
  - Fear [Not Recovered/Not Resolved]
  - Tension [Not Recovered/Not Resolved]
  - Unevaluable event [Not Recovered/Not Resolved]
  - Propulsive gait [Not Recovered/Not Resolved]
  - Pain [Recovered/Resolved]
  - Muscle rigidity [Not Recovered/Not Resolved]
  - Affective disorder [Not Recovered/Not Resolved]
  - Cognitive disorder [Not Recovered/Not Resolved]
  - Hypogeusia [Not Recovered/Not Resolved]
  - Feeling abnormal [Not Recovered/Not Resolved]
  - Device dislocation [Not Recovered/Not Resolved]
  - Fall [Recovered/Resolved]
  - Anxiety [Not Recovered/Not Resolved]
  - On and off phenomenon [Not Recovered/Not Resolved]
  - Malaise [Not Recovered/Not Resolved]
  - Stoma site erythema [Not Recovered/Not Resolved]
  - Dyskinesia [Not Recovered/Not Resolved]
  - Decreased appetite [Not Recovered/Not Resolved]
  - Energy increased [Not Recovered/Not Resolved]
  - Discomfort [Unknown]
  - Back pain [Recovered/Resolved]
  - Poor quality sleep [Unknown]

NARRATIVE: CASE EVENT DATE: 20230101
